FAERS Safety Report 23744384 (Version 1)
Quarter: 2024Q2

REPORT INFORMATION
  Report Type: Spontaneous
  Country: GB (occurrence: GB)
  Receive Date: 20240415
  Receipt Date: 20240415
  Transmission Date: 20240716
  Serious: Yes (Life-Threatening, Hospitalization, Other)
  Sender: FDA-Public Use
  Company Number: GB-PFIZER INC-202300059504

PATIENT
  Age: 76 Year
  Sex: Male

DRUGS (3)
  1. METHOTREXATE SODIUM [Suspect]
     Active Substance: METHOTREXATE SODIUM
     Indication: Pityriasis rubra pilaris
     Dosage: 10 MG, WEEKLY
     Route: 048
  2. ACITRETIN [Suspect]
     Active Substance: ACITRETIN
     Indication: Pityriasis rubra pilaris
     Dosage: 50 MG, DAILY
     Route: 048
  3. ACITRETIN [Suspect]
     Active Substance: ACITRETIN
     Dosage: 75 MG, DAILY
     Route: 048

REACTIONS (2)
  - Liver function test increased [Recovered/Resolved]
  - Jaundice [Recovered/Resolved]
